FAERS Safety Report 6721853-8 (Version None)
Quarter: 2010Q2

REPORT INFORMATION
  Report Type: 
  Country: None (occurrence: None)
  Receive Date: 20100512
  Receipt Date: 20100506
  Transmission Date: 20101027
  Serious: Yes (Other)
  Sender: FDA-Public Use
  Company Number: JP-JNJFOC-20100502404

PATIENT
  Age: 63 Year
  Sex: Female

DRUGS (2)
  1. ITRIZOLE [Suspect]
     Indication: ONYCHOMYCOSIS
     Route: 048
  2. LULICONAZOLE [Concomitant]
     Route: 065

REACTIONS (2)
  - DRUG ERUPTION [None]
  - ERYTHEMA [None]
